FAERS Safety Report 5771624-4 (Version None)
Quarter: 2008Q2

REPORT INFORMATION
  Report Type: 
  Country: None (occurrence: None)
  Receive Date: 20080611
  Receipt Date: 20080527
  Transmission Date: 20081010
  Serious: Yes (Death, Hospitalization)
  Sender: FDA-Public Use
  Company Number: 2008001038

PATIENT
  Age: 74 Year
  Sex: Male

DRUGS (10)
  1. ERLOTINIB (TABLET) [Suspect]
     Indication: LUNG ADENOCARCINOMA
     Dosage: (150 MG, QD), ORAL
     Route: 048
     Dates: start: 20080317, end: 20080421
  2. BISOPROLOL FUMARATE [Concomitant]
  3. AMLODIPINE [Concomitant]
  4. CANDESARTAN CILEXETIL [Concomitant]
  5. MAGNESIUM OXIDE (MAGNESIUM OXIDE) [Concomitant]
  6. FLUNITRAZEPAM (FLUNITRAZEPAM) [Concomitant]
  7. HANGE-SHASHIN-TO [Concomitant]
  8. NAFTOPIDIL (NAFTOPIDIL) [Concomitant]
  9. EVIPROSTAT (EVIPROSTAT) [Concomitant]
  10. OMEPRAZOLE [Concomitant]

REACTIONS (1)
  - INTERSTITIAL LUNG DISEASE [None]
